FAERS Safety Report 4811354-6 (Version None)
Quarter: 2005Q4

REPORT INFORMATION
  Report Type: 
  Country: None (occurrence: None)
  Receive Date: 20051026
  Receipt Date: 20051026
  Transmission Date: 20060501
  Serious: No
  Sender: FDA-Public Use
  Company Number: None

PATIENT
  Sex: Female

DRUGS (1)
  1. NASACORT AQ [Suspect]
     Indication: RHINITIS ALLERGIC
     Dosage: ONE SPRAY ONCE DAILY NASAL
     Route: 045
     Dates: start: 20050922, end: 20050929

REACTIONS (2)
  - DRUG EFFECT INCREASED [None]
  - PHARMACEUTICAL PRODUCT COMPLAINT [None]
